FAERS Safety Report 18491550 (Version 1)
Quarter: 2020Q4

REPORT INFORMATION
  Report Type: Spontaneous
  Country: BE (occurrence: BE)
  Receive Date: 20201111
  Receipt Date: 20201111
  Transmission Date: 20210114
  Serious: Yes (Other)
  Sender: FDA-Public Use
  Company Number: BE-DENTSPLY-2020SCDP000363

PATIENT

DRUGS (5)
  1. LIDOCAINE. [Suspect]
     Active Substance: LIDOCAINE
     Indication: ANAESTHESIA
     Dosage: OPIOID-FREE ANESTHESIA (OFA) A COMBINATION OF DEXMEDETOMIDINE, LIDOCAINE, AND KETAMINE
  2. DEXMEDETOMIDINE. [Suspect]
     Active Substance: DEXMEDETOMIDINE
     Indication: EPIGLOTTIS RECONSTRUCTION
  3. KETAMINE [KETAMINE HYDROCHLORIDE] [Suspect]
     Active Substance: KETAMINE HYDROCHLORIDE
     Indication: EPIGLOTTIS RECONSTRUCTION
  4. KETAMINE [KETAMINE HYDROCHLORIDE] [Suspect]
     Active Substance: KETAMINE HYDROCHLORIDE
     Indication: ANAESTHESIA
     Dosage: OPIOID-FREE ANESTHESIA (OFA) A COMBINATION OF DEXMEDETOMIDINE, LIDOCAINE, AND KETAMINE
  5. DEXMEDETOMIDINE. [Suspect]
     Active Substance: DEXMEDETOMIDINE
     Indication: ANAESTHESIA
     Dosage: OPIOID-FREE ANESTHESIA (OFA) A COMBINATION OF DEXMEDETOMIDINE, LIDOCAINE, AND KETAMINE

REACTIONS (3)
  - Thrombosis [Unknown]
  - Procedural nausea [Unknown]
  - Procedural vomiting [Unknown]
